FAERS Safety Report 4321220-0 (Version None)
Quarter: 2004Q1

REPORT INFORMATION
  Report Type: 
  Country: None (occurrence: None)
  Receive Date: 20040322
  Receipt Date: 20040126
  Transmission Date: 20041129
  Serious: No
  Sender: FDA-Public Use
  Company Number: A-US2004-05013

PATIENT
  Age: 64 Year
  Sex: Female

DRUGS (6)
  1. TRACLEER [Suspect]
     Indication: PULMONARY HYPERTENSION
     Dosage: 125 MG, BID, ORAL
     Route: 048
     Dates: start: 20030601
  2. WARFARIN SODIUM [Concomitant]
  3. DIURETICS [Concomitant]
  4. POTASSIUM (POTASSIUM) [Concomitant]
  5. MAGNESIUM [Concomitant]
  6. ACIPHEX [Concomitant]

REACTIONS (4)
  - ABNORMAL FAECES [None]
  - CONSTIPATION [None]
  - HAEMOGLOBIN DECREASED [None]
  - PLATELET COUNT DECREASED [None]
